FAERS Safety Report 14403163 (Version 1)
Quarter: 2018Q1

REPORT INFORMATION
  Report Type: Spontaneous
  Country: US (occurrence: US)
  Receive Date: 20180117
  Receipt Date: 20180117
  Transmission Date: 20180509
  Serious: Yes (Other)
  Sender: FDA-Public Use
  Company Number: US-BAYER-2018-009798

PATIENT

DRUGS (1)
  1. ALIQOPA [Suspect]
     Active Substance: COPANLISIB

REACTIONS (1)
  - Blood glucose increased [None]
